FAERS Safety Report 7497781-X (Version None)
Quarter: 2011Q2

REPORT INFORMATION
  Report Type: 
  Country: None (occurrence: None)
  Receive Date: 20110524
  Receipt Date: 20081107
  Transmission Date: 20111010
  Serious: Yes (Death, Other)
  Sender: FDA-Public Use
  Company Number: US-BAYER-200838449NA

PATIENT
  Sex: Male
  Weight: 93.333 kg

DRUGS (15)
  1. LEVITRA [Concomitant]
     Dosage: 20 MG AS NEEDED
     Route: 048
  2. SYNTHROID [Concomitant]
     Dosage: 0.15 MG, QD
     Route: 048
  3. HEPARIN [Concomitant]
     Dosage: UNK
     Route: 042
     Dates: start: 20061020, end: 20061020
  4. TRASYLOL [Suspect]
     Dosage: 50 ML/HR INFUSION
     Route: 042
     Dates: start: 20061020, end: 20061020
  5. COLCHICINE [Concomitant]
     Dosage: 0.6 MG 1 EVERY 2 HOURS AS NEEDED
     Route: 048
  6. PLASMA [Concomitant]
     Dosage: 600 ML, ONCE
     Route: 042
     Dates: start: 20061020, end: 20061020
  7. TRASYLOL [Suspect]
     Indication: CORONARY REVASCULARISATION
     Dosage: 200 ML, ONCE, LOADING DOSE
     Route: 042
     Dates: start: 20061020, end: 20061020
  8. GLIPIZIDE [Suspect]
     Dosage: 10 MG, QD
     Route: 048
  9. ANCEF [Concomitant]
     Dosage: 1 G, ONCE
     Route: 042
     Dates: start: 20061020, end: 20061020
  10. MILRINONE [Concomitant]
     Dosage: 15 CC/HR
     Route: 042
     Dates: start: 20061020, end: 20061020
  11. ATROPINE [Concomitant]
     Dosage: UNK
     Route: 042
     Dates: start: 20061020, end: 20061020
  12. ATENOLOL [Concomitant]
     Dosage: 50 MG, QD
     Route: 048
  13. LASIX [Concomitant]
     Dosage: 20 MG, BID
     Route: 048
  14. ZOCOR [Concomitant]
     Dosage: 10 MG, QD
     Route: 048
  15. LISINOPRIL [Concomitant]
     Dosage: 5 MG, QD
     Route: 048

REACTIONS (9)
  - ANXIETY [None]
  - PAIN [None]
  - DEPRESSION [None]
  - FEAR [None]
  - ANHEDONIA [None]
  - RENAL FAILURE [None]
  - DEATH [None]
  - INJURY [None]
  - UNEVALUABLE EVENT [None]
